FAERS Safety Report 18217036 (Version 1)
Quarter: 2020Q3

REPORT INFORMATION
  Report Type: Other
  Country: US (occurrence: US)
  Receive Date: 20200901
  Receipt Date: 20200901
  Transmission Date: 20201103
  Serious: Yes (Other)
  Sender: FDA-Public Use
  Company Number: US-ROCHE-2667609

PATIENT

DRUGS (6)
  1. OCRELIZUMAB. [Suspect]
     Active Substance: OCRELIZUMAB
     Indication: MULTIPLE SCLEROSIS
  2. RITUXIMAB. [Suspect]
     Active Substance: RITUXIMAB
     Indication: PROGRESSIVE MULTIPLE SCLEROSIS
  3. OCRELIZUMAB. [Suspect]
     Active Substance: OCRELIZUMAB
     Indication: PROGRESSIVE MULTIPLE SCLEROSIS
  4. OCRELIZUMAB. [Suspect]
     Active Substance: OCRELIZUMAB
     Indication: RELAPSING-REMITTING MULTIPLE SCLEROSIS
     Route: 065
  5. RITUXIMAB. [Suspect]
     Active Substance: RITUXIMAB
     Indication: MULTIPLE SCLEROSIS
     Route: 065
  6. RITUXIMAB. [Suspect]
     Active Substance: RITUXIMAB
     Indication: RELAPSING-REMITTING MULTIPLE SCLEROSIS

REACTIONS (50)
  - Upper respiratory tract infection [Unknown]
  - Influenza [Unknown]
  - Sinusitis [Unknown]
  - Erythema [Unknown]
  - Pain [Unknown]
  - Dizziness [Unknown]
  - Rash [Unknown]
  - Nausea [Unknown]
  - Pain in extremity [Unknown]
  - Tremor [Unknown]
  - Pruritus [Unknown]
  - Pyrexia [Unknown]
  - Dysphagia [Unknown]
  - Hypoaesthesia [Unknown]
  - Depression [Unknown]
  - Vomiting [Unknown]
  - Chills [Unknown]
  - Ear pruritus [Unknown]
  - Asthenia [Unknown]
  - Oropharyngeal pain [Unknown]
  - Multiple sclerosis relapse [Unknown]
  - Malignant melanoma [Unknown]
  - Pneumonia [Unknown]
  - Sepsis [Unknown]
  - Oral herpes [Unknown]
  - Herpes zoster [Unknown]
  - Nasopharyngitis [Unknown]
  - Malaise [Unknown]
  - Rhinorrhoea [Unknown]
  - Infection [Unknown]
  - Throat irritation [Unknown]
  - Urinary tract infection [Unknown]
  - Throat tightness [Unknown]
  - Gait disturbance [Unknown]
  - Paraesthesia [Unknown]
  - Flushing [Unknown]
  - Breast cancer [Unknown]
  - Bronchitis [Unknown]
  - Fatigue [Unknown]
  - Muscular weakness [Unknown]
  - Neutropenia [Unknown]
  - Crohn^s disease [Unknown]
  - Infusion related reaction [Unknown]
  - Dyspnoea [Unknown]
  - Fall [Unknown]
  - Urticaria [Unknown]
  - Hypersensitivity [Unknown]
  - Headache [Unknown]
  - Cough [Unknown]
  - Back pain [Unknown]
